FAERS Safety Report 12010477 (Version 1)
Quarter: 2016Q1

REPORT INFORMATION
  Report Type: Spontaneous
  Country: US (occurrence: US)
  Receive Date: 20160205
  Receipt Date: 20160205
  Transmission Date: 20160526
  Serious: No
  Sender: FDA-Public Use
  Company Number: US-FRI-1000080938

PATIENT
  Age: 57 Year
  Sex: Female

DRUGS (2)
  1. FETZIMA [Suspect]
     Active Substance: LEVOMILNACIPRAN HYDROCHLORIDE
     Indication: DEPRESSION
     Dosage: 80MG
     Route: 048
     Dates: start: 20151001, end: 20151112
  2. EFFEXOR [Concomitant]
     Active Substance: VENLAFAXINE HYDROCHLORIDE
     Indication: DEPRESSION
     Dosage: 75MG
     Route: 048
     Dates: start: 20151109

REACTIONS (5)
  - Anxiety [Recovered/Resolved]
  - Panic attack [Recovered/Resolved]
  - Expired product administered [Recovered/Resolved]
  - Euphoric mood [Recovered/Resolved]
  - Feeling abnormal [Not Recovered/Not Resolved]

NARRATIVE: CASE EVENT DATE: 20151006
